FAERS Safety Report 7770323-7 (Version None)
Quarter: 2011Q3

REPORT INFORMATION
  Report Type: 
  Country: None (occurrence: None)
  Receive Date: 20110922
  Receipt Date: 20110110
  Transmission Date: 20111222
  Serious: No
  Sender: FDA-Public Use
  Company Number: US-ASTRAZENECA-2010SE57512

PATIENT
  Age: 59 Year
  Sex: Female

DRUGS (4)
  1. HYDROXINE [Concomitant]
     Indication: ANXIETY
  2. LAMICTAL [Concomitant]
  3. PRISTIQ [Concomitant]
  4. SEROQUEL XR [Suspect]
     Indication: BIPOLAR DISORDER
     Route: 048
     Dates: start: 20050101

REACTIONS (1)
  - BRONCHITIS [None]
